FAERS Safety Report 24058867 (Version 1)
Quarter: 2024Q3

REPORT INFORMATION
  Report Type: Spontaneous
  Country: JP (occurrence: JP)
  Receive Date: 20240708
  Receipt Date: 20240708
  Transmission Date: 20241016
  Serious: Yes (Other)
  Sender: TAKEDA
  Company Number: JP-TAKEDA-2024TUS068287

PATIENT
  Age: 41 Year
  Sex: Female

DRUGS (4)
  1. LIALDA [Suspect]
     Active Substance: MESALAMINE
     Indication: Colitis ulcerative
     Dosage: 4800 MILLIGRAM, QD
     Route: 048
  2. LIALDA [Suspect]
     Active Substance: MESALAMINE
     Dosage: 3600 MILLIGRAM, QD
     Route: 048
  3. LIALDA [Suspect]
     Active Substance: MESALAMINE
     Dosage: 4800 MILLIGRAM, QD
     Route: 048
  4. ADALIMUMAB [Suspect]
     Active Substance: ADALIMUMAB\ISOPROPYL ALCOHOL
     Indication: Colitis ulcerative
     Dosage: UNK
     Route: 065

REACTIONS (7)
  - Erythema [Recovering/Resolving]
  - Dermatitis psoriasiform [Recovered/Resolved]
  - Haematochezia [Unknown]
  - Rash [Unknown]
  - Drug intolerance [Unknown]
  - Colitis ulcerative [Recovering/Resolving]
  - Rash pruritic [Unknown]
